FAERS Safety Report 6274888-6 (Version None)
Quarter: 2009Q3

REPORT INFORMATION
  Report Type: 
  Country: None (occurrence: None)
  Receive Date: 20090717
  Receipt Date: 20090702
  Transmission Date: 20100115
  Serious: Yes (Disabling)
  Sender: FDA-Public Use
  Company Number: 321492

PATIENT
  Age: 79 Year
  Sex: Female

DRUGS (5)
  1. FENTANYL-100 [Suspect]
  2. MIDAZOLAM HYDROCHLORIDE [Suspect]
  3. ATRACURIUM BESYLATE [Suspect]
  4. (NEOSTIGMINE BROMIDE) [Suspect]
  5. PROPOFOL [Concomitant]

REACTIONS (1)
  - DYSKINESIA [None]
